FAERS Safety Report 21361844 (Version 1)
Quarter: 2022Q3

REPORT INFORMATION
  Report Type: Spontaneous
  Country: US (occurrence: US)
  Receive Date: 20220922
  Receipt Date: 20220922
  Transmission Date: 20221027
  Serious: Yes (Other)
  Sender: FDA-Public Use
  Company Number: US-BRISTOL-MYERS SQUIBB COMPANY-2022-109400

PATIENT
  Age: 71 Year
  Sex: Female

DRUGS (1)
  1. ORENCIA [Suspect]
     Active Substance: ABATACEPT
     Indication: Psoriasis
     Dosage: 125 MG/ML
     Route: 058
     Dates: start: 20220519

REACTIONS (4)
  - Urinary tract infection [Unknown]
  - Fracture pain [Unknown]
  - Fracture [Unknown]
  - Off label use [Unknown]

NARRATIVE: CASE EVENT DATE: 20220519
